FAERS Safety Report 20077921 (Version 1)
Quarter: 2021Q4

REPORT INFORMATION
  Report Type: Spontaneous
  Country: IN (occurrence: IN)
  Receive Date: 20211116
  Receipt Date: 20211116
  Transmission Date: 20220304
  Serious: Yes (Other)
  Sender: FDA-Public Use
  Company Number: IN-SUN PHARMACEUTICAL INDUSTRIES LTD-2021R1-317469

PATIENT
  Age: 37 Year
  Sex: Female

DRUGS (4)
  1. DICLOFENAC [Suspect]
     Active Substance: DICLOFENAC
     Indication: Dysmenorrhoea
     Dosage: UNK
     Route: 030
  2. ACETAMINOPHEN\IBUPROFEN [Suspect]
     Active Substance: ACETAMINOPHEN\IBUPROFEN
     Indication: Dysmenorrhoea
     Dosage: UNK
     Route: 065
  3. MEFENAMIC ACID [Suspect]
     Active Substance: MEFENAMIC ACID
     Indication: Dysmenorrhoea
     Dosage: UNK
     Route: 065
  4. METFORMIN [Concomitant]
     Active Substance: METFORMIN HYDROCHLORIDE
     Indication: Diabetes mellitus
     Dosage: UNK
     Route: 065

REACTIONS (2)
  - Renal infarct [Recovered/Resolved]
  - Renal ischaemia [Recovered/Resolved]
